FAERS Safety Report 15503835 (Version 1)
Quarter: 2018Q4

REPORT INFORMATION
  Report Type: Spontaneous
  Country: US (occurrence: US)
  Receive Date: 20181009
  Receipt Date: 20181009
  Transmission Date: 20190205
  Serious: Yes (Other)
  Sender: FDA-Public Use
  Company Number: None

PATIENT
  Age: 49 Year
  Sex: Female
  Weight: 72 kg

DRUGS (9)
  1. NORETHINDRONE ACETATE AND ETHINYL ESTRADIOL TABLETS, USP 1 MG/0.02 MG [Suspect]
     Active Substance: ETHINYL ESTRADIOL\NORETHINDRONE ACETATE
     Indication: ENDOMETRIOSIS
     Dosage: ?          QUANTITY:1 TABLET(S);?
     Route: 048
     Dates: start: 20180610, end: 20180922
  2. NORETHINDRONE ACETATE AND ETHINYL ESTRADIOL TABLETS, USP 1 MG/0.02 MG [Suspect]
     Active Substance: ETHINYL ESTRADIOL\NORETHINDRONE ACETATE
     Indication: ADENOMYOSIS
     Dosage: ?          QUANTITY:1 TABLET(S);?
     Route: 048
     Dates: start: 20180610, end: 20180922
  3. EYE NUTRITION (THERATEARS), [Concomitant]
  4. WOMEN^S ENERGY MULTI-VITAMIN (RAINBOW LIGHT) [Concomitant]
  5. CALCIUM W/D3 (SOLGAR) [Concomitant]
  6. EVENING PRIMROSE OIL (NOW) [Concomitant]
  7. OC COMPANION (VITANICA) [Concomitant]
  8. ZYFLAMEND [Concomitant]
  9. FOCUS DL (NEUROSCIENCE) [Concomitant]

REACTIONS (2)
  - Product substitution issue [None]
  - Migraine [None]
